FAERS Safety Report 17969736 (Version 1)
Quarter: 2020Q3

REPORT INFORMATION
  Report Type: Spontaneous
  Country: UA (occurrence: UA)
  Receive Date: 20200701
  Receipt Date: 20200701
  Transmission Date: 20201103
  Serious: Yes (Other)
  Sender: FDA-Public Use
  Company Number: NVSC2020UA178025

PATIENT
  Age: 51 Year
  Sex: Female

DRUGS (3)
  1. ZOLEDRONIC ACID [Suspect]
     Active Substance: ZOLEDRONIC ACID
     Indication: BREAST CANCER
     Dosage: 4 MG, 28D (4 MG ONCE EVERY 28 DAYS)
     Route: 065
     Dates: start: 20170930
  2. PALBOCICLIB [Suspect]
     Active Substance: PALBOCICLIB
     Indication: BREAST CANCER
     Dosage: 125 MG, QD 125 MG ONCE A DAY FOR 21 DAYS FOLLOWED BY A 7?DAYS BREAK
     Route: 065
     Dates: start: 20170930
  3. LETROZOLE. [Suspect]
     Active Substance: LETROZOLE
     Indication: BREAST CANCER
     Dosage: 2.5 MG, QD
     Route: 065
     Dates: start: 20170930

REACTIONS (1)
  - Hepatic lesion [Unknown]

NARRATIVE: CASE EVENT DATE: 201911
